FAERS Safety Report 5902263-X (Version None)
Quarter: 2008Q3

REPORT INFORMATION
  Report Type: 
  Country: None (occurrence: None)
  Receive Date: 20080929
  Receipt Date: 20080607
  Transmission Date: 20090109
  Serious: No
  Sender: FDA-Public Use
  Company Number: US-BAUSCH-2008BL002535

PATIENT
  Age: 16 Year
  Sex: Male

DRUGS (5)
  1. NEOMYCIN AND POLYMXIN B SULFATES AND HYDROCORTISONE [Suspect]
     Indication: OTITIS EXTERNA
     Route: 001
     Dates: start: 20080605, end: 20080601
  2. AMOXICILLIN [Concomitant]
     Indication: EAR INFECTION
     Route: 048
     Dates: start: 20080605
  3. ALEVE [Concomitant]
     Indication: PAIN
     Route: 048
  4. ADVIL [Concomitant]
     Indication: PAIN
     Route: 048
  5. ALBUTEROL [Concomitant]
     Indication: WHEEZING
     Route: 049
     Dates: start: 20080605

REACTIONS (4)
  - EAR PAIN [None]
  - HYPOACUSIS [None]
  - MEDICATION ERROR [None]
  - TINNITUS [None]
